FAERS Safety Report 4336809-2 (Version None)
Quarter: 2004Q2

REPORT INFORMATION
  Report Type: 
  Country: None (occurrence: None)
  Receive Date: 20040408
  Receipt Date: 20040330
  Transmission Date: 20050107
  Serious: Yes (Hospitalization)
  Sender: FDA-Public Use
  Company Number: 2004-02-1780

PATIENT
  Age: 54 Year
  Sex: Female
  Weight: 60 kg

DRUGS (13)
  1. TEMODAR [Suspect]
     Indication: DISEASE RECURRENCE
     Dosage: 300-900MG QD* ORAL
     Route: 048
     Dates: start: 20040117, end: 20040224
  2. TEMODAR [Suspect]
     Indication: OLIGODENDROGLIOMA
     Dosage: 300-900MG QD* ORAL
     Route: 048
     Dates: start: 20040117, end: 20040224
  3. FAMOTIDINE [Concomitant]
  4. LEVOTHYROXINE SODIUM [Concomitant]
  5. GUANFACINE HCL [Concomitant]
  6. COMPAZINE [Concomitant]
  7. PHENOBARBITAL TAB [Concomitant]
  8. PHENOBARBITAL TAB [Concomitant]
  9. METHYLPHENIDATE HCL [Concomitant]
  10. SENNA [Concomitant]
  11. LEVETIRACETAM [Concomitant]
  12. VALPROIC ACID [Concomitant]
  13. DEXAMETHASONE [Concomitant]

REACTIONS (7)
  - EATING DISORDER [None]
  - HYPERSOMNIA [None]
  - HYPOKINESIA [None]
  - MEDICATION ERROR [None]
  - MENTAL STATUS CHANGES [None]
  - POVERTY OF SPEECH [None]
  - TREATMENT NONCOMPLIANCE [None]
